FAERS Safety Report 6444914-X (Version None)
Quarter: 2009Q4

REPORT INFORMATION
  Report Type: 
  Country: None (occurrence: None)
  Receive Date: 20091118
  Receipt Date: 20091113
  Transmission Date: 20100525
  Serious: Yes (Death)
  Sender: FDA-Public Use
  Company Number: JP-EISAI INC.-E2020-05481-SPO-JP

PATIENT
  Sex: Male
  Weight: 57 kg

DRUGS (5)
  1. ARICEPT [Suspect]
     Indication: DEMENTIA ALZHEIMER'S TYPE
     Route: 048
     Dates: start: 20091011, end: 20091012
  2. BASEN [Concomitant]
     Indication: DIABETES MELLITUS
     Route: 048
  3. ZYLORIC [Concomitant]
     Route: 048
  4. DIOVAN [Concomitant]
     Indication: HYPERTENSION
     Route: 048
  5. WARFARIN SODIUM [Concomitant]
     Route: 048

REACTIONS (3)
  - CARDIAC DISORDER [None]
  - SUDDEN DEATH [None]
  - TREATMENT NONCOMPLIANCE [None]
